FAERS Safety Report 23038832 (Version 1)
Quarter: 2023Q4

REPORT INFORMATION
  Report Type: Report from Study
  Country: FR (occurrence: FR)
  Receive Date: 20231006
  Receipt Date: 20231006
  Transmission Date: 20240110
  Serious: Yes (Other)
  Sender: FDA-Public Use
  Company Number: FR-ALNYLAM PHARMACEUTICALS, INC.-ALN-2023-005139

PATIENT

DRUGS (1)
  1. ONPATTRO [Suspect]
     Active Substance: PATISIRAN SODIUM
     Indication: Product used for unknown indication
     Dosage: UNK
     Route: 065

REACTIONS (9)
  - Abdominal pain upper [Unknown]
  - Cough [Unknown]
  - Vomiting [Unknown]
  - Polyp [Unknown]
  - Urinary retention [Unknown]
  - Urinary tract infection [Unknown]
  - Disease progression [Unknown]
  - Hand deformity [Unknown]
  - Hypoaesthesia [Unknown]
